FAERS Safety Report 10682105 (Version 3)
Quarter: 2015Q1

REPORT INFORMATION
  Report Type: Report from Study
  Country: AU (occurrence: AU)
  Receive Date: 20141230
  Receipt Date: 20150129
  Transmission Date: 20150720
  Serious: Yes (Death, Other)
  Sender: FDA-Public Use
  Company Number: AU-ASTRAZENECA-2010SE48603

PATIENT
  Age: 25129 Day
  Sex: Male

DRUGS (2)
  1. ENZALUTAMIDE [Suspect]
     Active Substance: ENZALUTAMIDE
     Route: 065
  2. ZOLADEX [Suspect]
     Active Substance: GOSERELIN ACETATE
     Route: 058
     Dates: start: 20100228, end: 2014

REACTIONS (5)
  - Pain in extremity [Not Recovered/Not Resolved]
  - Death [Fatal]
  - Metastases to central nervous system [Fatal]
  - Malignant neoplasm progression [Not Recovered/Not Resolved]
  - Metastases to bone [Fatal]

NARRATIVE: CASE EVENT DATE: 20101007
